FAERS Safety Report 15129293 (Version 4)
Quarter: 2018Q3

REPORT INFORMATION
  Report Type: Spontaneous
  Country: US (occurrence: US)
  Receive Date: 20180711
  Receipt Date: 20180829
  Transmission Date: 20181010
  Serious: No
  Sender: FDA-Public Use
  Company Number: US-GLAXOSMITHKLINE-US2018120673

PATIENT
  Age: 89 Year
  Sex: Female

DRUGS (1)
  1. FLONASE SENSIMIST ALLERGY RELIEF [Suspect]
     Active Substance: FLUTICASONE FUROATE
     Indication: EAR DISCOMFORT
     Dosage: UNK

REACTIONS (3)
  - Wrong technique in product usage process [Unknown]
  - Product quality issue [Unknown]
  - Product use in unapproved indication [Unknown]
